FAERS Safety Report 7201031-9 (Version None)
Quarter: 2010Q4

REPORT INFORMATION
  Report Type: 
  Country: None (occurrence: None)
  Receive Date: 20101229
  Receipt Date: 20100412
  Transmission Date: 20110411
  Serious: Yes (Hospitalization, Other)
  Sender: FDA-Public Use
  Company Number: US-ASTRAZENECA-2009UW15714

PATIENT
  Age: 17418 Day
  Sex: Female

DRUGS (16)
  1. SEROQUEL [Suspect]
     Route: 048
     Dates: start: 20030815
  2. LISINOPRIL [Concomitant]
     Route: 048
     Dates: start: 20000620
  3. LIPITOR [Concomitant]
     Route: 048
     Dates: start: 20080620
  4. PREDNISONE [Concomitant]
     Dates: start: 20080620
  5. FLUOXETINE [Concomitant]
     Dates: start: 20080620
  6. LEVOTHYROXINE [Concomitant]
     Dosage: 25 MCG EVERY OTHER DAY
     Dates: start: 20080620
  7. CYMBALTA [Concomitant]
     Dates: start: 20080620
  8. MUCINEX DM [Concomitant]
     Dates: start: 20080620
  9. DIAZEPAM [Concomitant]
     Dates: start: 20080620
  10. LAMICTAL [Concomitant]
     Route: 048
     Dates: start: 20080620
  11. CLOZAPINE [Concomitant]
     Dosage: 100 MG IN THE MORNING, THEN 2 MIDDAY AND 3 AT NIGHT
     Dates: start: 20080620
  12. BUSPIRONE [Concomitant]
     Dates: start: 20030815
  13. NEURONTIN [Concomitant]
     Dates: start: 20030815
  14. AMITRIPTYLINE [Concomitant]
     Dates: start: 20030815
  15. EFFEXOR [Concomitant]
     Dates: start: 20030815
  16. DEPAKOTE [Concomitant]
     Dates: start: 20030822

REACTIONS (3)
  - DIABETES MELLITUS [None]
  - DIABETIC NEUROPATHY [None]
  - HYPERGLYCAEMIC HYPEROSMOLAR NONKETOTIC SYNDROME [None]
